FAERS Safety Report 10639629 (Version 1)
Quarter: 2014Q4

REPORT INFORMATION
  Report Type: Spontaneous
  Country: US (occurrence: None)
  Receive Date: 20141205
  Receipt Date: 20141205
  Transmission Date: 20150529
  Serious: Yes (Other)
  Sender: FDA-Public Use
  Company Number: None

PATIENT
  Age: 51 Year
  Sex: Female
  Weight: 136.08 kg

DRUGS (2)
  1. LYRICA [Suspect]
     Active Substance: PREGABALIN
     Indication: HYPOAESTHESIA
     Dosage: 1 PILL...ONLY 7 PILLS TAKEN
  2. LYRICA [Suspect]
     Active Substance: PREGABALIN
     Indication: FIBROMYALGIA
     Dosage: 1 PILL...ONLY 7 PILLS TAKEN

REACTIONS (10)
  - Peripheral swelling [None]
  - Dyspnoea [None]
  - Blood pressure increased [None]
  - Swelling face [None]
  - Sinusitis [None]
  - Paraesthesia [None]
  - Chest discomfort [None]
  - Lacrimation increased [None]
  - Fluid retention [None]
  - Hypoaesthesia [None]

NARRATIVE: CASE EVENT DATE: 20141127
